FAERS Safety Report 7799771-6 (Version None)
Quarter: 2011Q4

REPORT INFORMATION
  Report Type: 
  Country: None (occurrence: None)
  Receive Date: 20111006
  Receipt Date: 20110930
  Transmission Date: 20120403
  Serious: Yes (Other)
  Sender: FDA-Public Use
  Company Number: US-AMGEN-USASP2011050877

PATIENT
  Sex: Male

DRUGS (4)
  1. DANAZOL [Concomitant]
     Indication: THROMBOCYTOPENIA
  2. CORTICOSTEROIDS [Concomitant]
     Indication: THROMBOCYTOPENIA
  3. NPLATE [Suspect]
     Indication: THROMBOCYTOPENIA
     Dates: start: 20101129, end: 20110803
  4. NPLATE [Suspect]
     Indication: CHRONIC LYMPHOCYTIC LEUKAEMIA

REACTIONS (3)
  - THERAPEUTIC RESPONSE DECREASED [None]
  - PLATELET COUNT DECREASED [None]
  - THROMBOCYTOPENIA [None]
